FAERS Safety Report 7417940-1 (Version None)
Quarter: 2011Q2

REPORT INFORMATION
  Report Type: 
  Country: None (occurrence: None)
  Receive Date: 20110412
  Receipt Date: 20110412
  Transmission Date: 20111010
  Serious: Yes (Hospitalization)
  Sender: FDA-Public Use
  Company Number: None

PATIENT
  Sex: Male
  Weight: 56.6996 kg

DRUGS (1)
  1. IMIPRAMINE [Suspect]
     Indication: ENURESIS
     Dosage: IMIPRAMINE 50MG PO
     Route: 048
     Dates: start: 20090501

REACTIONS (5)
  - DIZZINESS [None]
  - FATIGUE [None]
  - CHEST PAIN [None]
  - TACHYCARDIA [None]
  - ELECTROCARDIOGRAM CHANGE [None]
